FAERS Safety Report 5847273-6 (Version None)
Quarter: 2008Q3

REPORT INFORMATION
  Report Type: 
  Country: None (occurrence: None)
  Receive Date: 20080731
  Receipt Date: 20080529
  Transmission Date: 20090109
  Serious: No
  Sender: FDA-Public Use
  Company Number: US200805006216

PATIENT
  Age: 54 Year
  Sex: Female
  Weight: 128.3 kg

DRUGS (8)
  1. BYETTA [Suspect]
     Indication: TYPE 2 DIABETES MELLITUS
     Dosage: 5 UG, 2/D, SUBCUTANEOUS
     Route: 058
     Dates: start: 20080401
  2. METFORMIN HCL [Concomitant]
  3. NEURONTIN /USA/ (GABAPENTIN) [Concomitant]
  4. ANTIHYPERTENSIVES [Concomitant]
  5. ZOLOFT [Concomitant]
  6. LYRICA [Concomitant]
  7. NORVASC [Concomitant]
  8. CELEBREX [Concomitant]

REACTIONS (2)
  - URINE COLOUR ABNORMAL [None]
  - URINE ODOUR ABNORMAL [None]
